FAERS Safety Report 25383446 (Version 1)
Quarter: 2025Q2

REPORT INFORMATION
  Report Type: Spontaneous
  Country: DE (occurrence: DE)
  Receive Date: 20250602
  Receipt Date: 20250602
  Transmission Date: 20250716
  Serious: Yes (Hospitalization)
  Sender: ROCHE
  Company Number: DE-ROCHE-10000296050

PATIENT
  Age: 55 Year

DRUGS (1)
  1. OCREVUS [Suspect]
     Active Substance: OCRELIZUMAB
     Indication: Secondary progressive multiple sclerosis
     Route: 065

REACTIONS (4)
  - Neutropenia [Unknown]
  - Secondary progressive multiple sclerosis [Unknown]
  - Pyrexia [Unknown]
  - General physical health deterioration [Unknown]
